FAERS Safety Report 9552076 (Version 1)
Quarter: 2013Q3

REPORT INFORMATION
  Report Type: Spontaneous
  Country: KW (occurrence: None)
  Receive Date: 20130731
  Receipt Date: 20130731
  Transmission Date: 20140515
  Serious: Yes (Hospitalization)
  Sender: FDA-Public Use
  Company Number: ALK-2013-001572

PATIENT
  Age: 65 Year
  Sex: Female

DRUGS (4)
  1. VERAPAMIL HCL [Suspect]
     Indication: HYPERTENSION
     Route: 048
  2. VALSARTAN (VALSARTAN) [Suspect]
     Indication: PRODUCT USED FOR UNKNOWN INDICATION
  3. ASPIRIN (ACETYLSALICYLIC ACID) [Suspect]
     Indication: PRODUCT USED FOR UNKNOWN INDICATION
  4. ATORVASTATIN (ATORVASTATIN) [Suspect]
     Indication: PRODUCT USED FOR UNKNOWN INDICATION

REACTIONS (9)
  - Nodal arrhythmia [None]
  - Urinary tract infection [None]
  - Hyperkalaemia [None]
  - Blood creatine increased [None]
  - Leukocytosis [None]
  - Blood bicarbonate decreased [None]
  - Blood pH decreased [None]
  - Dizziness [None]
  - Pyrexia [None]
